FAERS Safety Report 4839923-8 (Version None)
Quarter: 2005Q4

REPORT INFORMATION
  Report Type: 
  Country: None (occurrence: None)
  Receive Date: 20051129
  Receipt Date: 20051018
  Transmission Date: 20060501
  Serious: Yes (Hospitalization)
  Sender: FDA-Public Use
  Company Number: HQWYE118520OCT05

PATIENT
  Sex: Female

DRUGS (7)
  1. ENBREL [Suspect]
     Indication: RHEUMATOID ARTHRITIS
     Route: 058
     Dates: start: 20050628
  2. ENBREL [Suspect]
     Route: 058
     Dates: start: 20051015
  3. RHEUMATREX [Concomitant]
     Indication: DRUG USE FOR UNKNOWN INDICATION
     Dosage: UNKNOWN DOSE AND FREQUENCY
     Route: 065
     Dates: start: 20050628
  4. RHEUMATREX [Concomitant]
     Route: 048
     Dates: start: 20050101, end: 20051001
  5. RHEUMATREX [Concomitant]
     Dosage: UNKNOWN DOSE AND FREQUENCY
     Route: 048
     Dates: start: 20051015
  6. PREDNISOLONE [Concomitant]
     Route: 065
  7. ACTONEL [Concomitant]
     Route: 065
     Dates: start: 20050623

REACTIONS (4)
  - ALANINE AMINOTRANSFERASE INCREASED [None]
  - ASPARTATE AMINOTRANSFERASE INCREASED [None]
  - LIVER DISORDER [None]
  - PYREXIA [None]
